FAERS Safety Report 4977810-5 (Version None)
Quarter: 2006Q2

REPORT INFORMATION
  Report Type: 
  Country: None (occurrence: None)
  Receive Date: 20060420
  Receipt Date: 20060413
  Transmission Date: 20061013
  Serious: Yes (Hospitalization)
  Sender: FDA-Public Use
  Company Number: PHBS2006NL05451

PATIENT
  Age: 29 Year
  Sex: Male

DRUGS (2)
  1. RITALIN [Suspect]
     Dosage: 10 MG, BID
     Route: 048
     Dates: start: 20001201, end: 20010901
  2. METHYLPHENIDATE HCL [Suspect]
     Dosage: 10 MG, QD
     Route: 048
     Dates: start: 20031101, end: 20031201

REACTIONS (1)
  - URINARY INCONTINENCE [None]
